FAERS Safety Report 5877988-5 (Version None)
Quarter: 2008Q3

REPORT INFORMATION
  Report Type: 
  Country: None (occurrence: None)
  Receive Date: 20080911
  Receipt Date: 20080904
  Transmission Date: 20090109
  Serious: Yes (Disabling)
  Sender: FDA-Public Use
  Company Number: CH-ASTRAZENECA-2008PK01986

PATIENT
  Age: 42 Year
  Sex: Male

DRUGS (6)
  1. SEROQUEL [Suspect]
     Indication: DEPRESSION
     Route: 048
     Dates: start: 20080519, end: 20080725
  2. SEROQUEL [Suspect]
     Route: 048
     Dates: start: 20080726, end: 20080731
  3. CITALOPRAM HYDROBROMIDE [Concomitant]
     Indication: DEPRESSION
     Route: 048
     Dates: start: 20071201
  4. KEPPRA [Concomitant]
     Indication: GRAND MAL CONVULSION
     Route: 048
     Dates: start: 20071101
  5. RIVOTRIL [Concomitant]
     Route: 048
     Dates: start: 20071101
  6. DEPAKENE [Concomitant]
     Indication: GRAND MAL CONVULSION
     Route: 048
     Dates: start: 20080101

REACTIONS (3)
  - EJACULATION FAILURE [None]
  - ERECTILE DYSFUNCTION [None]
  - URINARY INCONTINENCE [None]
